FAERS Safety Report 9369948 (Version 3)
Quarter: 2013Q3

REPORT INFORMATION
  Report Type: Report from Study
  Country: US (occurrence: US)
  Receive Date: 20130626
  Receipt Date: 20130821
  Transmission Date: 20140515
  Serious: Yes (Other)
  Sender: FDA-Public Use
  Company Number: US-ROCHE-1188711

PATIENT
  Age: 48 Year
  Sex: Male
  Weight: 98.97 kg

DRUGS (9)
  1. PEGASYS [Suspect]
     Indication: CHRONIC HEPATITIS C
     Route: 065
     Dates: start: 20130121
  2. RIBASPHERE [Suspect]
     Indication: CHRONIC HEPATITIS C
     Dosage: DIVIDED DOSES
     Route: 065
     Dates: start: 20130121
  3. VICTRELIS [Suspect]
     Indication: CHRONIC HEPATITIS C
     Route: 065
  4. TELAPREVIR [Suspect]
     Indication: CHRONIC HEPATITIS C
     Route: 065
     Dates: end: 20130614
  5. NORVASC [Concomitant]
     Indication: HYPERTENSION
  6. CELEXA [Concomitant]
  7. PRILOSEC [Concomitant]
  8. LORTAB [Concomitant]
  9. ATORVASTATIN [Concomitant]

REACTIONS (19)
  - Heart rate abnormal [Unknown]
  - Cardiac pacemaker insertion [Unknown]
  - Weight decreased [Not Recovered/Not Resolved]
  - Injection site rash [Unknown]
  - Pain [Unknown]
  - Nausea [Unknown]
  - Abdominal distension [Unknown]
  - Insomnia [Not Recovered/Not Resolved]
  - Fatigue [Unknown]
  - Dysphonia [Unknown]
  - Dry throat [Unknown]
  - Pharyngitis [Unknown]
  - Pyrexia [Unknown]
  - Insomnia [Unknown]
  - Dry mouth [Unknown]
  - Insomnia [Unknown]
  - Muscle spasms [Unknown]
  - Dysgeusia [Unknown]
  - Full blood count decreased [Unknown]
